FAERS Safety Report 4652222-2 (Version None)
Quarter: 2005Q2

REPORT INFORMATION
  Report Type: 
  Country: None (occurrence: None)
  Receive Date: 20050502
  Receipt Date: 20050425
  Transmission Date: 20051028
  Serious: Yes (Hospitalization, Other)
  Sender: FDA-Public Use
  Company Number: 2005065081

PATIENT
  Sex: Female

DRUGS (2)
  1. LIPITOR (ATORVASTATIN) [Suspect]
     Indication: HYPERCHOLESTEROLAEMIA
     Dates: end: 20050401
  2. ROSIGLITAZONE MALEATE [Suspect]
     Indication: ILL-DEFINED DISORDER

REACTIONS (4)
  - ALANINE AMINOTRANSFERASE INCREASED [None]
  - DEHYDRATION [None]
  - GALLBLADDER OPERATION [None]
  - VOMITING [None]
